FAERS Safety Report 4309756-X (Version None)
Quarter: 2004Q1

REPORT INFORMATION
  Report Type: 
  Country: None (occurrence: None)
  Receive Date: 20040301
  Receipt Date: 20040217
  Transmission Date: 20041129
  Serious: Yes (Hospitalization, Disabling, Other)
  Sender: FDA-Public Use
  Company Number: 2002059028

PATIENT
  Age: 75 Year
  Sex: Female
  Weight: 40.8237 kg

DRUGS (8)
  1. DILANTIN KAPSEAL [Suspect]
     Indication: CONVULSION
     Dosage: SEE IMAGE
     Route: 048
     Dates: start: 20020301, end: 20020101
  2. DILANTIN KAPSEAL [Suspect]
     Indication: CONVULSION
     Dosage: SEE IMAGE
     Route: 048
     Dates: start: 20020101
  3. ZYRTEC [Suspect]
     Indication: COUGH
     Dosage: 20 MG (BID), ORAL
     Route: 048
     Dates: start: 20031201, end: 20031201
  4. ZYRTEC [Suspect]
     Indication: SNEEZING
     Dosage: 20 MG (BID), ORAL
     Route: 048
     Dates: start: 20031201, end: 20031201
  5. ZITHROMAX [Suspect]
     Indication: BRONCHITIS
     Dosage: ORAL
     Route: 048
     Dates: start: 20031201, end: 20031201
  6. NORVASC [Suspect]
     Indication: ILL-DEFINED DISORDER
     Dosage: (DAILY), ORAL
     Route: 048
  7. MULTIVITAMIN [Concomitant]
  8. ACETYLSALICYLIC ACID SRT [Concomitant]

REACTIONS (14)
  - ANTICONVULSANT DRUG LEVEL BELOW THERAPEUTIC [None]
  - ASTHENIA [None]
  - BRONCHITIS [None]
  - CONVULSION [None]
  - COUGH [None]
  - DYSKINESIA [None]
  - DYSPHAGIA [None]
  - HYPERSOMNIA [None]
  - LOSS OF CONSCIOUSNESS [None]
  - MEDICATION ERROR [None]
  - OVERDOSE [None]
  - SNEEZING [None]
  - SOMNOLENCE [None]
  - WEIGHT DECREASED [None]
